FAERS Safety Report 12985435 (Version 3)
Quarter: 2016Q4

REPORT INFORMATION
  Report Type: Report from Study
  Country: US (occurrence: US)
  Receive Date: 20161130
  Receipt Date: 20161222
  Transmission Date: 20170207
  Serious: Yes (Other)
  Sender: FDA-Public Use
  Company Number: US-AMGEN-USASL2016168254

PATIENT
  Age: 27 Year
  Sex: Male

DRUGS (2)
  1. ENBREL [Suspect]
     Active Substance: ETANERCEPT
     Indication: PSORIATIC ARTHROPATHY
  2. ENBREL [Suspect]
     Active Substance: ETANERCEPT
     Indication: PSORIASIS
     Dosage: 50 MG, 2 TIMES/WK
     Route: 065
     Dates: start: 2016

REACTIONS (15)
  - Malaise [Unknown]
  - Decreased immune responsiveness [Unknown]
  - Off label use [Unknown]
  - Depression [Unknown]
  - Injection site bruising [Unknown]
  - Injection site discomfort [Unknown]
  - Rhinorrhoea [Recovered/Resolved]
  - Astigmatism [Unknown]
  - Influenza [Unknown]
  - Visual impairment [Not Recovered/Not Resolved]
  - Underdose [Unknown]
  - Nasopharyngitis [Recovered/Resolved]
  - Drug dose omission [Unknown]
  - Cholesteatoma [Unknown]
  - Cough [Recovered/Resolved]

NARRATIVE: CASE EVENT DATE: 2016
